FAERS Safety Report 6223446-8 (Version None)
Quarter: 2009Q2

REPORT INFORMATION
  Report Type: 
  Country: None (occurrence: None)
  Receive Date: 20090609
  Receipt Date: 20090529
  Transmission Date: 20091009
  Serious: Yes (Hospitalization)
  Sender: FDA-Public Use
  Company Number: GXKR2009GB06411

PATIENT
  Age: 31 Year
  Sex: Male

DRUGS (8)
  1. WARFARIN SODIUM [Suspect]
     Indication: DEEP VEIN THROMBOSIS
  2. WARFARIN SODIUM [Suspect]
     Indication: PULMONARY EMBOLISM
  3. PREDNISOLONE [Suspect]
     Indication: WEGENER'S GRANULOMATOSIS
     Dosage: 60 MG DAY, ORAL, 40 MG
     Route: 048
  4. ENOXAPARIN SODIUM [Suspect]
     Indication: DEEP VEIN THROMBOSIS
     Dosage: 80 MG, SUBCUTANEOUS
     Route: 058
  5. ENOXAPARIN SODIUM [Suspect]
     Indication: PULMONARY EMBOLISM
     Dosage: 80 MG, SUBCUTANEOUS
     Route: 058
  6. CYCLOPHOSPHAMIDE [Suspect]
     Indication: WEGENER'S GRANULOMATOSIS
     Dosage: 100 MG/DAY, ORAL
     Route: 048
  7. METHYLPREDNISOLONE [Concomitant]
  8. CO-TRIMOXAZOLE (CO-TRIMOXAZOLE) [Concomitant]

REACTIONS (6)
  - DEEP VEIN THROMBOSIS [None]
  - DYSPNOEA [None]
  - HAEMOGLOBIN DECREASED [None]
  - HAEMOPTYSIS [None]
  - PULMONARY EMBOLISM [None]
  - PULMONARY HAEMORRHAGE [None]
